FAERS Safety Report 7481069-7 (Version None)
Quarter: 2011Q2

REPORT INFORMATION
  Report Type: 
  Country: None (occurrence: None)
  Receive Date: 20110516
  Receipt Date: 20110506
  Transmission Date: 20111010
  Serious: Yes (Death)
  Sender: FDA-Public Use
  Company Number: US-GENZYME-CLOF-1001482

PATIENT
  Sex: Male

DRUGS (8)
  1. CLOLAR [Suspect]
     Indication: ACUTE MYELOID LEUKAEMIA
     Dosage: 40 MG/M2, QDX5
     Route: 042
     Dates: start: 20060915, end: 20060919
  2. BUMETANIDE [Concomitant]
     Indication: PROPHYLAXIS
  3. ACYCLOVIR [Concomitant]
     Indication: INFECTION PROPHYLAXIS
     Dosage: 500 MG, BID
     Route: 042
  4. DEXAMETHASONE [Concomitant]
     Indication: PROPHYLAXIS OF NAUSEA AND VOMITING
     Dosage: 10 MG, QD
     Route: 042
  5. LEVOFLOXACIN [Concomitant]
     Indication: INFECTION PROPHYLAXIS
     Dosage: 500 MG, QD
     Route: 065
  6. CYTARABINE [Suspect]
     Indication: ACUTE MYELOID LEUKAEMIA
     Dosage: 1000 MG/M2, QDX5
     Route: 042
  7. 5-HT3 ANTAGONIST [Concomitant]
     Indication: PROPHYLAXIS OF NAUSEA AND VOMITING
     Dosage: EACH DAY OF CHEMOTHERAPY
     Route: 065
  8. BUMETANIDE [Concomitant]
     Indication: FLUID REPLACEMENT
     Dosage: UNK
     Route: 042

REACTIONS (1)
  - ACUTE MYELOID LEUKAEMIA [None]
